FAERS Safety Report 12740302 (Version 4)
Quarter: 2016Q4

REPORT INFORMATION
  Report Type: Spontaneous
  Country: GB (occurrence: GB)
  Receive Date: 20160913
  Receipt Date: 20161012
  Transmission Date: 20170207
  Serious: Yes (Other)
  Sender: FDA-Public Use
  Company Number: GB-TAKEDA-2016TUS016147

PATIENT
  Age: 58 Year
  Sex: Male

DRUGS (2)
  1. ENTYVIO [Suspect]
     Active Substance: VEDOLIZUMAB
     Indication: COLITIS ULCERATIVE
     Dosage: 300 MG, UNK
     Route: 042
     Dates: start: 20150913, end: 20160810
  2. ADVAGRAF [Suspect]
     Active Substance: TACROLIMUS
     Indication: PRODUCT USED FOR UNKNOWN INDICATION
     Dosage: 3 MG, BID
     Route: 065
     Dates: start: 20101230

REACTIONS (3)
  - Burkitt^s lymphoma [Unknown]
  - Epstein-Barr virus infection [Unknown]
  - Gastrointestinal carcinoma [Unknown]

NARRATIVE: CASE EVENT DATE: 20160823
